FAERS Safety Report 9080511 (Version 1)
Quarter: 2013Q1

REPORT INFORMATION
  Report Type: Report from Study
  Country: US (occurrence: US)
  Receive Date: 20130130
  Receipt Date: 20130130
  Transmission Date: 20140127
  Serious: Yes (Other)
  Sender: FDA-Public Use
  Company Number: US-ABBOTT-12P-163-0962257-00

PATIENT
  Age: 43 None
  Sex: Female
  Weight: 70.37 kg

DRUGS (6)
  1. HUMIRA 40 MG/0.8 ML PEN [Suspect]
     Indication: CROHN^S DISEASE
     Dates: start: 20081206
  2. VALIUM [Concomitant]
     Indication: TEMPOROMANDIBULAR JOINT SYNDROME
  3. BENTYL [Concomitant]
     Indication: ABDOMINAL PAIN UPPER
  4. LEVSIN [Concomitant]
     Indication: ABDOMINAL PAIN UPPER
  5. ULTRAM [Concomitant]
     Indication: PAIN
  6. TIGAN [Concomitant]
     Indication: NAUSEA

REACTIONS (8)
  - Spinal fusion surgery [Not Recovered/Not Resolved]
  - Endometrial ablation [Unknown]
  - Oropharyngeal pain [Unknown]
  - Fatigue [Unknown]
  - Mononucleosis heterophile test positive [Unknown]
  - Ulcer [Unknown]
  - Pharyngeal ulceration [Unknown]
  - Sinus congestion [Unknown]
